FAERS Safety Report 14279343 (Version 1)
Quarter: 2017Q4

REPORT INFORMATION
  Report Type: Spontaneous
  Country: SE (occurrence: SE)
  Receive Date: 20171213
  Receipt Date: 20171213
  Transmission Date: 20180321
  Serious: Yes (Other)
  Sender: FDA-Public Use
  Company Number: SE-TEVA-2017-SE-829589

PATIENT
  Age: 18 Year
  Sex: Male

DRUGS (1)
  1. MIRTAZAPINE. [Suspect]
     Active Substance: MIRTAZAPINE
     Indication: DEPRESSION
     Dates: start: 201611, end: 2017

REACTIONS (1)
  - Cortisol decreased [Not Recovered/Not Resolved]

NARRATIVE: CASE EVENT DATE: 20170103
